FAERS Safety Report 10201888 (Version 1)
Quarter: 2014Q2

REPORT INFORMATION
  Report Type: Spontaneous
  Country: CA (occurrence: CA)
  Receive Date: 20140528
  Receipt Date: 20140528
  Transmission Date: 20141212
  Serious: Yes (Other)
  Sender: FDA-Public Use
  Company Number: CA-009507513-1405CAN013475

PATIENT
  Age: 48 Year
  Sex: Female

DRUGS (1)
  1. SINGULAIR [Suspect]
     Indication: ASTHMA
     Dosage: 10 MG, QD
     Route: 048
     Dates: start: 201102

REACTIONS (4)
  - Endodontic procedure [Recovering/Resolving]
  - Tooth extraction [Recovering/Resolving]
  - General anaesthesia [Recovering/Resolving]
  - Artificial crown procedure [Recovering/Resolving]
